FAERS Safety Report 8496335-6 (Version None)
Quarter: 2012Q3

REPORT INFORMATION
  Report Type: 
  Country: None (occurrence: None)
  Receive Date: 20120709
  Receipt Date: 20120703
  Transmission Date: 20120928
  Serious: No
  Sender: FDA-Public Use
  Company Number: US-PFIZER INC-2012137625

PATIENT
  Sex: Female

DRUGS (5)
  1. MEDROL [Concomitant]
     Indication: RHEUMATOID ARTHRITIS
     Dosage: 4 MG, 1X/DAY
  2. ZYVOX [Suspect]
     Indication: WOUND INFECTION
  3. COUMADIN [Concomitant]
     Dosage: UNK
  4. ZYVOX [Suspect]
     Indication: SKIN INFECTION
     Dosage: 600 MG, 2X/DAY
     Route: 048
     Dates: start: 20120605, end: 20120607
  5. ZYVOX [Suspect]
     Indication: CELLULITIS

REACTIONS (2)
  - VISION BLURRED [None]
  - HEADACHE [None]
